FAERS Safety Report 9228091 (Version 1)
Quarter: 2013Q2

REPORT INFORMATION
  Report Type: Spontaneous
  Country: US (occurrence: US)
  Receive Date: 20130412
  Receipt Date: 20130412
  Transmission Date: 20140414
  Serious: Yes (Hospitalization, Other)
  Sender: FDA-Public Use
  Company Number: US-ROCHE-1209370

PATIENT
  Age: 17 Year
  Sex: Male

DRUGS (5)
  1. ACTILYSE [Suspect]
     Indication: DEEP VEIN THROMBOSIS
     Route: 065
  2. ISOTRETINOIN [Suspect]
     Indication: PRODUCT USED FOR UNKNOWN INDICATION
     Route: 065
  3. PREDNISONE [Suspect]
     Indication: DERMATITIS CONTACT
     Route: 065
  4. HEPARIN [Suspect]
     Indication: DEEP VEIN THROMBOSIS
     Route: 042
  5. CEPHALEXIN [Concomitant]

REACTIONS (4)
  - Drug ineffective [Unknown]
  - Pulmonary embolism [Unknown]
  - Heparin-induced thrombocytopenia [Unknown]
  - Deep vein thrombosis [Not Recovered/Not Resolved]
